FAERS Safety Report 12471674 (Version 1)
Quarter: 2016Q2

REPORT INFORMATION
  Report Type: Spontaneous
  Country: AU (occurrence: AU)
  Receive Date: 20160616
  Receipt Date: 20160616
  Transmission Date: 20160815
  Serious: Yes (Other)
  Sender: FDA-Public Use
  Company Number: AU-PFIZER INC-2016299704

PATIENT
  Age: 75 Year
  Sex: Female

DRUGS (1)
  1. SOMAC [Suspect]
     Active Substance: PANTOPRAZOLE SODIUM
     Indication: ABDOMINAL HERNIA
     Dosage: 40 MG, UNK
     Route: 048
     Dates: start: 20160526

REACTIONS (4)
  - Vomiting [Unknown]
  - Dysgeusia [Unknown]
  - Off label use [Unknown]
  - Angina pectoris [Unknown]
